FAERS Safety Report 19386157 (Version 1)
Quarter: 2021Q2

REPORT INFORMATION
  Report Type: Spontaneous
  Country: US (occurrence: US)
  Receive Date: 20210608
  Receipt Date: 20210608
  Transmission Date: 20210717
  Serious: Yes (Death, Hospitalization, Other)
  Sender: FDA-Public Use
  Company Number: US-AUROBINDO-AUR-APL-2019-084816

PATIENT
  Age: 35 Year
  Sex: Female
  Weight: 82.5 kg

DRUGS (3)
  1. CITALOPRAM [Suspect]
     Active Substance: CITALOPRAM HYDROBROMIDE
     Dosage: UNK
     Route: 048
  2. CITALOPRAM [Suspect]
     Active Substance: CITALOPRAM HYDROBROMIDE
     Indication: PRODUCT USED FOR UNKNOWN INDICATION
     Dosage: UNK
     Route: 065
  3. CITALOPRAM [Suspect]
     Active Substance: CITALOPRAM HYDROBROMIDE
     Dosage: UNK
     Route: 065

REACTIONS (16)
  - Intentional overdose [Fatal]
  - Retching [Fatal]
  - Cardiac arrest [Fatal]
  - Electrocardiogram QT prolonged [Unknown]
  - Liver injury [Fatal]
  - Pulse absent [Fatal]
  - Electrocardiogram QRS complex prolonged [Unknown]
  - Tachycardia [Unknown]
  - Seizure [Fatal]
  - Serotonin syndrome [Fatal]
  - Cyanosis [Unknown]
  - Cough [Fatal]
  - Renal injury [Fatal]
  - Pulseless electrical activity [Unknown]
  - Torsade de pointes [Fatal]
  - Pyrexia [Fatal]
